FAERS Safety Report 9525674 (Version 2)
Quarter: 2013Q4

REPORT INFORMATION
  Report Type: Spontaneous
  Country: US (occurrence: US)
  Receive Date: 20130916
  Receipt Date: 20131015
  Transmission Date: 20140711
  Serious: Yes (Hospitalization, Other)
  Sender: FDA-Public Use
  Company Number: US-AMGEN-USASP2013064249

PATIENT
  Age: 88 Year
  Sex: Female
  Weight: 92.5 kg

DRUGS (2)
  1. EPOGEN [Suspect]
     Indication: RENAL FAILURE CHRONIC
     Dosage: 14000 UNIT, QWK
     Route: 058
     Dates: start: 20110201
  2. ARANESP [Suspect]
     Indication: PRODUCT USED FOR UNKNOWN INDICATION
     Dosage: 40 MUG, UNK
     Route: 065
     Dates: start: 20110520, end: 20110520

REACTIONS (16)
  - Haemoglobin abnormal [Unknown]
  - Hypoxia [Recovered/Resolved]
  - Haemoglobin decreased [Recovered/Resolved]
  - Aortic stenosis [Not Recovered/Not Resolved]
  - Atrial fibrillation [Not Recovered/Not Resolved]
  - Colon cancer [Not Recovered/Not Resolved]
  - Cellulitis [Unknown]
  - Asthenia [Recovered/Resolved]
  - Cardiac failure congestive [Not Recovered/Not Resolved]
  - Chest pain [Recovered/Resolved]
  - Dyspnoea [Recovered/Resolved]
  - Anaemia [Recovered/Resolved]
  - Clostridium difficile infection [Unknown]
  - Reticulocyte count abnormal [Unknown]
  - Autoimmune haemolytic anaemia [Not Recovered/Not Resolved]
  - Upper respiratory tract infection [Unknown]
